FAERS Safety Report 11729174 (Version 1)
Quarter: 2015Q4

REPORT INFORMATION
  Report Type: Spontaneous
  Country: GB (occurrence: GB)
  Receive Date: 20151112
  Receipt Date: 20151112
  Transmission Date: 20160304
  Serious: Yes (Other)
  Sender: FDA-Public Use
  Company Number: GB-BAYER-2015-458329

PATIENT
  Age: 70 Year
  Sex: Female
  Weight: 103 kg

DRUGS (8)
  1. CIPROFLOXACIN. [Suspect]
     Active Substance: CIPROFLOXACIN
     Dosage: UNK
     Dates: start: 20151019
  2. CO-AMOXICLAV [Concomitant]
     Active Substance: AMOXICILLIN\CLAVULANIC ACID
     Dosage: 1 DF, TID
     Dates: start: 20150828, end: 20150904
  3. FLUTICASONE [Concomitant]
     Active Substance: FLUTICASONE\FLUTICASONE PROPIONATE
     Dosage: 2 DF, BID
     Route: 045
     Dates: start: 20141105
  4. AMOXICILLIN. [Concomitant]
     Active Substance: AMOXICILLIN
     Dosage: 1 DF, TID
     Dates: start: 20150803, end: 20150808
  5. BECONASE AQ [Concomitant]
     Active Substance: BECLOMETHASONE DIPROPIONATE MONOHYDRATE
     Dosage: 2 DF, BID
     Route: 045
     Dates: start: 20150707, end: 20150803
  6. BECLOMETASONE DIPROPIONATE [Concomitant]
     Active Substance: BECLOMETHASONE DIPROPIONATE
     Dosage: 2 DF, BID
     Route: 045
     Dates: start: 20150803, end: 20150810
  7. PREDNISOLONE. [Concomitant]
     Active Substance: PREDNISOLONE
     Dosage: 6 DF, UNK
     Dates: start: 20150803, end: 20150810
  8. MOMETASONE [Concomitant]
     Active Substance: MOMETASONE
     Dosage: 1 DF, BID
     Dates: start: 20150803

REACTIONS (4)
  - Rash pruritic [Unknown]
  - Rash papular [Unknown]
  - Hypersensitivity [Unknown]
  - Skin lesion [Unknown]

NARRATIVE: CASE EVENT DATE: 20151019
